FAERS Safety Report 5272834-5 (Version None)
Quarter: 2007Q1

REPORT INFORMATION
  Report Type: 
  Country: None (occurrence: None)
  Receive Date: 20070322
  Receipt Date: 20070314
  Transmission Date: 20070707
  Serious: Yes (Hospitalization)
  Sender: FDA-Public Use
  Company Number: DE-BRISTOL-MYERS SQUIBB COMPANY-13721113

PATIENT
  Age: 67 Year
  Sex: Male

DRUGS (6)
  1. CETUXIMAB [Suspect]
     Indication: NON-SMALL CELL LUNG CANCER
     Route: 040
     Dates: start: 20070228, end: 20070228
  2. DOCETAXEL [Suspect]
     Indication: NON-SMALL CELL LUNG CANCER
     Route: 042
     Dates: start: 20070221, end: 20070221
  3. GEMCITABINE [Suspect]
     Indication: NON-SMALL CELL LUNG CANCER
     Route: 042
     Dates: start: 20070207, end: 20070207
  4. ALLOPURINOL [Concomitant]
     Indication: HYPERURICAEMIA
     Dates: start: 20050301
  5. SPIRONOLACTONE [Concomitant]
     Indication: OEDEMA
     Dates: start: 20070101
  6. BEZAFIBRATE [Concomitant]
     Indication: HYPERLIPIDAEMIA
     Dates: start: 20050201

REACTIONS (1)
  - SYNCOPE [None]
